FAERS Safety Report 6768728-6 (Version None)
Quarter: 2010Q2

REPORT INFORMATION
  Report Type: 
  Country: None (occurrence: None)
  Receive Date: 20100614
  Receipt Date: 20100604
  Transmission Date: 20101027
  Serious: Yes (Other)
  Sender: FDA-Public Use
  Company Number: US-ABBOTT-10P-163-0649667-00

PATIENT
  Sex: Male

DRUGS (3)
  1. HUMIRA [Suspect]
     Indication: RHEUMATOID ARTHRITIS
     Dates: start: 20050101
  2. ALBUTEROL SULATE [Concomitant]
     Indication: ASTHMA
  3. ADVAIR DISKUS 100/50 [Concomitant]
     Indication: ASTHMA

REACTIONS (7)
  - CEREBROVASCULAR ACCIDENT [None]
  - FALSE POSITIVE LABORATORY RESULT [None]
  - MIGRAINE [None]
  - RHEUMATOID ARTHRITIS [None]
  - SLEEP APNOEA SYNDROME [None]
  - TREMOR [None]
  - TUNNEL VISION [None]
